FAERS Safety Report 21139392 (Version 8)
Quarter: 2022Q4

REPORT INFORMATION
  Report Type: Report from Study
  Country: JP (occurrence: JP)
  Receive Date: 20220727
  Receipt Date: 20221215
  Transmission Date: 20230112
  Serious: Yes (Hospitalization, Other)
  Sender: FDA-Public Use
  Company Number: JP-ONO-2022JP020032

PATIENT
  Age: 66 Year
  Sex: Female
  Weight: 51.6 kg

DRUGS (44)
  1. IPILIMUMAB [Suspect]
     Active Substance: IPILIMUMAB
     Indication: Gastric cancer
     Dosage: MOST RECENT DOSE (51.8 MG/KG) WAS RECEIVED ON 03-JUN-2022?ACTION TAKEN FOR IPILIMUMAB WAS DISCONTINU
     Dates: start: 20220414
  2. GIMERACIL\OTERACIL\TEGAFUR [Suspect]
     Active Substance: GIMERACIL\OTERACIL\TEGAFUR
     Indication: Gastric cancer
     Dosage: FORM OF ADMIN: TABLET?50 MG/M2 (FROM 14-APR-2022 TO 27-APR-2022)?50 MG/M2 (FROM 15-APR-2022 TO 28-AP
     Route: 048
     Dates: start: 20220414
  3. OXALIPLATIN [Suspect]
     Active Substance: OXALIPLATIN
     Indication: Gastric cancer
     Dosage: MOST RECENT DOSE OF 144 MG/M2 WAS ADMINISTERED ON 03-JUN-2022, PRIOR TO EVENT ONSET.?ALSO RECEIVED 1
     Dates: start: 20220414
  4. Sodium Picosulfate Solution [Concomitant]
     Indication: Constipation
     Dosage: 1 DOSAGE FORM= 15 UNIT NOS
     Route: 048
     Dates: start: 20220416, end: 20220416
  5. AZILVA Tablets [Concomitant]
     Indication: Hypertension
     Route: 048
  6. DEXCHLORPHENIRAMINE MALEATE [Concomitant]
     Active Substance: DEXCHLORPHENIRAMINE MALEATE
     Indication: Product used for unknown indication
     Dates: start: 20220506, end: 20220506
  7. FAMOTIDINE [Concomitant]
     Active Substance: FAMOTIDINE
     Indication: Product used for unknown indication
     Dates: start: 20220414, end: 20220414
  8. FAMOTIDINE [Concomitant]
     Active Substance: FAMOTIDINE
     Dates: start: 20220506, end: 20220506
  9. FAMOTIDINE [Concomitant]
     Active Substance: FAMOTIDINE
     Dates: start: 20220603, end: 20220603
  10. FAMOTIDINE [Concomitant]
     Active Substance: FAMOTIDINE
     Dates: start: 20220909, end: 20220909
  11. FAMOTIDINE [Concomitant]
     Active Substance: FAMOTIDINE
     Dates: start: 20220930, end: 20220930
  12. FAMOTIDINE [Concomitant]
     Active Substance: FAMOTIDINE
     Dates: start: 20220819, end: 20220819
  13. FAMOTIDINE [Concomitant]
     Active Substance: FAMOTIDINE
     Dates: start: 20221111, end: 20221111
  14. PALONOSETRON HYDROCHLORIDE [Concomitant]
     Active Substance: PALONOSETRON HYDROCHLORIDE
     Indication: Product used for unknown indication
     Dates: start: 20220506, end: 20220506
  15. DEXAMETHASONE SODIUM PHOSPHATE [Concomitant]
     Active Substance: DEXAMETHASONE SODIUM PHOSPHATE
     Indication: Product used for unknown indication
     Dates: start: 20220506, end: 20220506
  16. EMEND [Concomitant]
     Active Substance: APREPITANT
     Indication: Product used for unknown indication
     Route: 048
     Dates: start: 20220414, end: 20220414
  17. EMEND [Concomitant]
     Active Substance: APREPITANT
     Route: 048
     Dates: start: 20220415, end: 20220416
  18. EMEND [Concomitant]
     Active Substance: APREPITANT
     Route: 048
     Dates: start: 20220506, end: 20220506
  19. EMEND [Concomitant]
     Active Substance: APREPITANT
     Route: 048
     Dates: start: 20220819, end: 20220819
  20. EMEND [Concomitant]
     Active Substance: APREPITANT
     Route: 048
     Dates: start: 20220820, end: 20220821
  21. DECADRON [Concomitant]
     Active Substance: DEXAMETHASONE
     Indication: Product used for unknown indication
     Route: 048
     Dates: start: 20220415, end: 20220416
  22. MAGNESIUM OXIDE [Concomitant]
     Active Substance: MAGNESIUM OXIDE
     Indication: Constipation
     Dates: start: 20220422
  23. BIO-THREE OD Tablets [Concomitant]
     Indication: Constipation
     Dosage: DOSE= 3 UNITS NOS
     Route: 048
     Dates: start: 20220422
  24. POLARAMINE [Concomitant]
     Active Substance: DEXCHLORPHENIRAMINE MALEATE
     Indication: Product used for unknown indication
     Dates: start: 20220414, end: 20220414
  25. POLARAMINE [Concomitant]
     Active Substance: DEXCHLORPHENIRAMINE MALEATE
     Dates: start: 20220603, end: 20220603
  26. POLARAMINE [Concomitant]
     Active Substance: DEXCHLORPHENIRAMINE MALEATE
     Dates: start: 20220819, end: 20220819
  27. POLARAMINE [Concomitant]
     Active Substance: DEXCHLORPHENIRAMINE MALEATE
     Dates: start: 20220909, end: 20220909
  28. POLARAMINE [Concomitant]
     Active Substance: DEXCHLORPHENIRAMINE MALEATE
     Dates: start: 20220930, end: 20220930
  29. POLARAMINE [Concomitant]
     Active Substance: DEXCHLORPHENIRAMINE MALEATE
     Dates: start: 20221111, end: 20221111
  30. Aloxi I.V.injection [Concomitant]
     Indication: Product used for unknown indication
     Route: 041
     Dates: start: 20220414, end: 20220414
  31. Aloxi I.V.injection [Concomitant]
     Route: 041
     Dates: start: 20220603, end: 20220603
  32. Aloxi I.V.injection [Concomitant]
     Route: 041
     Dates: start: 20220819, end: 20220819
  33. Aloxi I.V.injection [Concomitant]
     Route: 041
     Dates: start: 20220909, end: 20220909
  34. Aloxi I.V.injection [Concomitant]
     Route: 041
     Dates: start: 20220930, end: 20220930
  35. Aloxi I.V.injection [Concomitant]
     Route: 041
     Dates: start: 20221111, end: 20221111
  36. DEXAMETHASONE SODIUM PHOSPHATE [Concomitant]
     Active Substance: DEXAMETHASONE SODIUM PHOSPHATE
     Indication: Product used for unknown indication
     Dates: start: 20220414, end: 20220414
  37. DEXAMETHASONE SODIUM PHOSPHATE [Concomitant]
     Active Substance: DEXAMETHASONE SODIUM PHOSPHATE
     Dates: start: 20220603, end: 20220603
  38. DEXAMETHASONE SODIUM PHOSPHATE [Concomitant]
     Active Substance: DEXAMETHASONE SODIUM PHOSPHATE
     Dates: start: 20220819, end: 20220819
  39. DEXAMETHASONE SODIUM PHOSPHATE [Concomitant]
     Active Substance: DEXAMETHASONE SODIUM PHOSPHATE
     Dates: start: 20220909, end: 20220909
  40. DEXAMETHASONE SODIUM PHOSPHATE [Concomitant]
     Active Substance: DEXAMETHASONE SODIUM PHOSPHATE
     Dates: start: 20220930, end: 20220930
  41. DEXAMETHASONE SODIUM PHOSPHATE [Concomitant]
     Active Substance: DEXAMETHASONE SODIUM PHOSPHATE
     Dates: start: 20221111, end: 20221111
  42. SENNOSIDES [Concomitant]
     Active Substance: SENNOSIDES
     Indication: Constipation
     Route: 048
     Dates: start: 20220415, end: 20220506
  43. RINDERON V [Concomitant]
     Active Substance: BETAMETHASONE VALERATE
     Indication: Product used for unknown indication
     Dosage: UNK
     Route: 061
     Dates: start: 20220527, end: 20220728
  44. OLOPATADINE HYDROCHLORIDE [Concomitant]
     Active Substance: OLOPATADINE HYDROCHLORIDE
     Indication: Product used for unknown indication
     Dates: start: 20220527, end: 20220603

REACTIONS (1)
  - Cytokine release syndrome [Not Recovered/Not Resolved]

NARRATIVE: CASE EVENT DATE: 20220714
